FAERS Safety Report 17266577 (Version 1)
Quarter: 2019Q4

REPORT INFORMATION
  Report Type: Spontaneous
  Country: US (occurrence: US)
  Receive Date: 20191219
  Receipt Date: 20191219
  Transmission Date: 20200122
  Serious: No
  Sender: FDA-Public Use
  Company Number: None

PATIENT
  Age: 69 Year
  Sex: Female
  Weight: 63 kg

DRUGS (3)
  1. U~DREAM LITE [Suspect]
     Active Substance: HERBALS
     Indication: SLEEP DISORDER
     Route: 048
     Dates: start: 20191218, end: 20191219
  2. AZENDROLATE (GENERIC FOZAMAX) [Concomitant]
  3. CA SUPPLEMENTS [Concomitant]

REACTIONS (5)
  - Product label confusion [None]
  - Middle insomnia [None]
  - Feeling abnormal [None]
  - Initial insomnia [None]
  - Dizziness [None]

NARRATIVE: CASE EVENT DATE: 20191219
